FAERS Safety Report 9371113 (Version 1)
Quarter: 2013Q2

REPORT INFORMATION
  Report Type: Spontaneous
  Country: US (occurrence: None)
  Receive Date: 20130626
  Receipt Date: 20130626
  Transmission Date: 20140414
  Serious: No
  Sender: FDA-Public Use
  Company Number: None

PATIENT
  Sex: Male

DRUGS (8)
  1. STIVARGA [Suspect]
     Dosage: 4 QD PO
  2. XANAX [Concomitant]
  3. SOMA [Concomitant]
  4. NORVASC [Concomitant]
  5. DIAZEPAM [Concomitant]
  6. PRILOSEC [Concomitant]
  7. PHENERGAN [Concomitant]
  8. OXYCODONE [Concomitant]

REACTIONS (3)
  - Nausea [None]
  - Decreased appetite [None]
  - Asthenia [None]
